FAERS Safety Report 9888900 (Version 2)
Quarter: 2014Q2

REPORT INFORMATION
  Report Type: Spontaneous
  Country: US (occurrence: US)
  Receive Date: 20140211
  Receipt Date: 20140416
  Transmission Date: 20141212
  Serious: Yes (Other)
  Sender: FDA-Public Use
  Company Number: US-GLAXOSMITHKLINE-A1059854A

PATIENT
  Age: 65 Year
  Sex: Female
  Weight: 70.5 kg

DRUGS (5)
  1. SORIATANE [Suspect]
     Indication: PSORIASIS
     Dosage: 25MG ALTERNATE DAYS
     Route: 048
     Dates: start: 201109
  2. ALAVERT [Concomitant]
  3. ALLEGRA [Concomitant]
  4. GABAPENTIN [Concomitant]
  5. PRAVASTATIN [Concomitant]

REACTIONS (1)
  - Breast cancer [Unknown]
